FAERS Safety Report 6666030-4 (Version None)
Quarter: 2010Q2

REPORT INFORMATION
  Report Type: 
  Country: None (occurrence: None)
  Receive Date: 20100402
  Receipt Date: 20100329
  Transmission Date: 20101027
  Serious: Yes (Other)
  Sender: FDA-Public Use
  Company Number: A0852970A

PATIENT
  Age: 66 Year
  Sex: Female
  Weight: 84.1 kg

DRUGS (1)
  1. AVANDAMET [Suspect]
     Dosage: 1TAB PER DAY
     Route: 048
     Dates: start: 20070501, end: 20070801

REACTIONS (2)
  - CARDIAC DISORDER [None]
  - SILENT MYOCARDIAL INFARCTION [None]
